FAERS Safety Report 6188325-3 (Version None)
Quarter: 2009Q2

REPORT INFORMATION
  Report Type: 
  Country: None (occurrence: None)
  Receive Date: 20090513
  Receipt Date: 20090403
  Transmission Date: 20091009
  Serious: Yes (Death)
  Sender: FDA-Public Use
  Company Number: US-JNJFOC-20090501311

PATIENT
  Sex: Male

DRUGS (3)
  1. FENTANYL [Suspect]
     Indication: PROCEDURAL PAIN
     Route: 062
  2. MORPHINE [Suspect]
     Indication: PROCEDURAL PAIN
     Route: 065
  3. OXYCODONE HCL [Suspect]
     Indication: PROCEDURAL PAIN
     Dosage: EVERY 4 TO 6 HOURS, AS NEEDED

REACTIONS (2)
  - DEATH [None]
  - OFF LABEL USE [None]
